FAERS Safety Report 10742201 (Version 1)
Quarter: 2015Q1

REPORT INFORMATION
  Report Type: Spontaneous
  Country: US (occurrence: None)
  Receive Date: 20150123
  Receipt Date: 20150123
  Transmission Date: 20150721
  Serious: Yes (Other)
  Sender: FDA-Public Use
  Company Number: None

PATIENT
  Age: 41 Year
  Sex: Male
  Weight: 72.58 kg

DRUGS (4)
  1. MULTIVITAMIN + MINERAL SUPPLEMENT [Concomitant]
  2. OXCARBAZEPRINE [Concomitant]
  3. ARTICAINE [Suspect]
     Active Substance: ARTICAINE
     Indication: LOCAL ANAESTHESIA
     Dates: start: 200306
  4. ARTICAINE [Suspect]
     Active Substance: ARTICAINE
     Indication: TOOTH DISORDER
     Dates: start: 200306

REACTIONS (2)
  - Anaesthetic complication [None]
  - Hypoaesthesia [None]

NARRATIVE: CASE EVENT DATE: 20140603
